FAERS Safety Report 6530459-5 (Version None)
Quarter: 2010Q1

REPORT INFORMATION
  Report Type: 
  Country: None (occurrence: None)
  Receive Date: 20100106
  Receipt Date: 20100106
  Transmission Date: 20100710
  Serious: Yes (Disabling, Other)
  Sender: FDA-Public Use
  Company Number: None

PATIENT
  Age: 54 Year
  Sex: Female

DRUGS (1)
  1. TRIAMCINOLONE [Suspect]
     Indication: RASH
     Dosage: THIN FILM APPLY TO AFFECTED AREAS TWICE DAILY TOPICAL TO SKIN
     Route: 061
     Dates: start: 20081006, end: 20090301

REACTIONS (6)
  - IMPAIRED HEALING [None]
  - PAIN [None]
  - SCAR [None]
  - SKIN ATROPHY [None]
  - SKIN HAEMORRHAGE [None]
  - SKIN LACERATION [None]
